FAERS Safety Report 24439245 (Version 1)
Quarter: 2024Q4

REPORT INFORMATION
  Report Type: Spontaneous
  Country: GB (occurrence: GB)
  Receive Date: 20241015
  Receipt Date: 20241015
  Transmission Date: 20250114
  Serious: Yes (Death, Other)
  Sender: SANOFI AVENTIS
  Company Number: GB-SA-SAC20230822000434

PATIENT
  Sex: Male

DRUGS (8)
  1. AUBAGIO [Suspect]
     Active Substance: TERIFLUNOMIDE
     Indication: Multiple sclerosis
     Dosage: 14 MG, QD
     Route: 048
     Dates: start: 2008
  2. TAMSULOSIN [Concomitant]
     Active Substance: TAMSULOSIN
     Dosage: UNK
     Route: 065
  3. BACLOFEN [Concomitant]
     Active Substance: BACLOFEN
     Dosage: UNK
     Route: 065
  4. TRAVOPROST [Concomitant]
     Active Substance: TRAVOPROST
     Dosage: UNK
  5. CHOLECALCIFEROL [Concomitant]
     Active Substance: CHOLECALCIFEROL
     Dosage: UNK
     Route: 065
  6. NEUROBION PLUS [Concomitant]
     Dosage: UNK
     Route: 065
  7. SERTRALINE [Concomitant]
     Active Substance: SERTRALINE HYDROCHLORIDE
     Dosage: UNK
     Route: 065
  8. FINASTERIDE\TAMSULOSIN [Concomitant]
     Active Substance: FINASTERIDE\TAMSULOSIN
     Dosage: UNK
     Route: 065

REACTIONS (4)
  - Death [Fatal]
  - Dizziness [Unknown]
  - Back pain [Unknown]
  - Expired product administered [Unknown]
